FAERS Safety Report 6802159-5 (Version None)
Quarter: 2010Q2

REPORT INFORMATION
  Report Type: 
  Country: None (occurrence: None)
  Receive Date: 20100629
  Receipt Date: 20090714
  Transmission Date: 20101027
  Serious: Yes (Other)
  Sender: FDA-Public Use
  Company Number: US-PFIZER INC-2006050694

PATIENT
  Sex: Male
  Weight: 95.3 kg

DRUGS (6)
  1. VIAGRA [Suspect]
     Indication: ERECTILE DYSFUNCTION
     Dosage: 50 MG, AS NEEDED
     Route: 048
     Dates: start: 20060101
  2. VIAGRA [Suspect]
     Dosage: HALF OF A 50MG TABLET
     Route: 048
     Dates: start: 20060101
  3. CORGARD [Concomitant]
     Route: 065
  4. XANAX [Concomitant]
     Route: 065
  5. TRUSOPT [Concomitant]
     Indication: GLAUCOMA
     Route: 047
  6. ACETYLSALICYLIC ACID [Concomitant]
     Route: 065

REACTIONS (5)
  - CYANOPSIA [None]
  - DRUG EFFECT DECREASED [None]
  - FLUSHING [None]
  - NASAL CONGESTION [None]
  - ROAD TRAFFIC ACCIDENT [None]
